FAERS Safety Report 7490659-7 (Version None)
Quarter: 2011Q2

REPORT INFORMATION
  Report Type: 
  Country: None (occurrence: None)
  Receive Date: 20110519
  Receipt Date: 20110516
  Transmission Date: 20111010
  Serious: Yes (Other)
  Sender: FDA-Public Use
  Company Number: MY-PFIZER INC-2011105468

PATIENT
  Age: 72 Year
  Sex: Female

DRUGS (1)
  1. UNASYN [Suspect]
     Indication: SEPSIS
     Dosage: 2 G, SINGLE
     Route: 042
     Dates: start: 20100603

REACTIONS (2)
  - DYSPNOEA [None]
  - FACE OEDEMA [None]
